FAERS Safety Report 9294364 (Version 1)
Quarter: 2013Q1

REPORT INFORMATION
  Report Type: Spontaneous
  Country: US (occurrence: None)
  Receive Date: 20121227
  Receipt Date: 20121227
  Transmission Date: 20140127
  Serious: Yes (Hospitalization)
  Sender: FDA-Public Use
  Company Number: PHEH2012US020808

PATIENT
  Sex: Male

DRUGS (9)
  1. AFINITOR [Suspect]
     Route: 048
  2. LEVOTHYROXINE (LEVOTHYROXINE) [Concomitant]
  3. OMEPRAZOLE (OMEPRAZOLE) [Concomitant]
  4. FLOVENT (FLUTICASONE PROPIONATE) [Concomitant]
  5. ONDANSETRON (ONDANSETRON) [Concomitant]
  6. GLIMEPIRIDE (GLIMEPIRIDE) [Concomitant]
  7. IRON (IRON) [Concomitant]
  8. CALCIUM TALBET [Concomitant]
  9. LISINOPRIL (LISINOPRIL) [Concomitant]

REACTIONS (3)
  - Pyrexia [None]
  - Hyperhidrosis [None]
  - Eye pruritus [None]
